FAERS Safety Report 7833222-8 (Version None)
Quarter: 2011Q4

REPORT INFORMATION
  Report Type: 
  Country: None (occurrence: None)
  Receive Date: 20111024
  Receipt Date: 20111021
  Transmission Date: 20120403
  Serious: Yes (Other)
  Sender: FDA-Public Use
  Company Number: US-PFIZER INC-2011255400

PATIENT
  Sex: Female
  Weight: 72.562 kg

DRUGS (21)
  1. PROZAC [Suspect]
     Indication: ANXIETY
  2. WELLBUTRIN [Suspect]
     Indication: DEPRESSION
     Dosage: UNK
  3. PAXIL [Suspect]
     Indication: DEPRESSION
     Dosage: UNK
  4. PAMELOR [Suspect]
     Indication: DEPRESSION
     Dosage: UNK
  5. ABILIFY [Suspect]
     Indication: DEPRESSION
     Dosage: UNK
  6. ZOLOFT [Suspect]
     Indication: DEPRESSION
     Dosage: UNK
  7. ZOLOFT [Suspect]
     Indication: ANXIETY
  8. PRISTIQ [Suspect]
     Indication: DEPRESSION
     Dosage: UNK
  9. PROZAC [Suspect]
     Indication: DEPRESSION
     Dosage: UNK
  10. NARDIL [Suspect]
     Indication: ANXIETY
  11. REMERON [Suspect]
     Indication: DEPRESSION
     Dosage: UNK
  12. NARDIL [Suspect]
     Indication: DEPRESSION
     Dosage: 30 MG, 2X/DAY
     Dates: start: 20101228
  13. CYMBALTA [Suspect]
     Indication: DEPRESSION
     Dosage: UNK
  14. AMBIEN [Concomitant]
     Indication: SLEEP DISORDER
     Dosage: 10 MG, DAILY
  15. PAMELOR [Suspect]
     Indication: ANXIETY
  16. WELLBUTRIN [Suspect]
     Indication: ANXIETY
  17. PAXIL [Suspect]
     Indication: ANXIETY
  18. REMERON [Suspect]
     Indication: ANXIETY
  19. ABILIFY [Suspect]
     Indication: ANXIETY
  20. PRISTIQ [Suspect]
     Indication: ANXIETY
  21. CYMBALTA [Suspect]
     Indication: ANXIETY

REACTIONS (3)
  - OEDEMA PERIPHERAL [None]
  - DRUG INEFFECTIVE [None]
  - THROMBOSIS [None]
